FAERS Safety Report 6233116-8 (Version None)
Quarter: 2009Q2

REPORT INFORMATION
  Report Type: 
  Country: None (occurrence: None)
  Receive Date: 20090616
  Receipt Date: 20090616
  Transmission Date: 20091009
  Serious: Yes (Hospitalization)
  Sender: FDA-Public Use
  Company Number: None

PATIENT
  Sex: Male
  Weight: 62 kg

DRUGS (4)
  1. BEVACIZUMAB (RHUMAB VEGF) [Suspect]
     Dosage: 1240 MG
     Dates: end: 20090527
  2. LEUCOVORIN CALCIUM [Suspect]
     Dosage: 2756 MG
     Dates: end: 20090527
  3. ELOXATIN [Suspect]
     Dosage: 586 MG
     Dates: end: 20090527
  4. FLUOROURACIL [Suspect]
     Dosage: 19292 MG
     Dates: end: 20090527

REACTIONS (2)
  - DEEP VEIN THROMBOSIS [None]
  - METASTASES TO LIVER [None]
